FAERS Safety Report 7742166-1 (Version None)
Quarter: 2011Q3

REPORT INFORMATION
  Report Type: 
  Country: None (occurrence: None)
  Receive Date: 20110912
  Receipt Date: 20110907
  Transmission Date: 20111222
  Serious: Yes (Life-Threatening, Hospitalization)
  Sender: FDA-Public Use
  Company Number: PHHY2011CA78032

PATIENT

DRUGS (7)
  1. SERAX [Concomitant]
     Dosage: 30 MG, HS
  2. CLOZAPINE [Suspect]
     Indication: SCHIZOPHRENIA
     Dosage: 500 MG, DAILY
     Route: 048
     Dates: start: 20080606, end: 20110825
  3. CLOZAPINE [Suspect]
     Indication: PSYCHOTIC DISORDER
     Dates: start: 20080715, end: 20110830
  4. WELLBUTRIN [Concomitant]
     Dosage: 150 MG, Q AM
  5. SERAX [Concomitant]
     Dosage: 15 MG, TID
  6. CLOPIXOL DEPOT [Concomitant]
     Dosage: 200 MG, UNK
     Route: 030
  7. ABILIFY [Concomitant]
     Dosage: 5 MG, Q AM

REACTIONS (1)
  - TOXICITY TO VARIOUS AGENTS [None]
